FAERS Safety Report 24764045 (Version 4)
Quarter: 2025Q1

REPORT INFORMATION
  Report Type: Report from Study
  Country: US (occurrence: US)
  Receive Date: 20241223
  Receipt Date: 20250129
  Transmission Date: 20250409
  Serious: Yes (Hospitalization, Other)
  Sender: ABBVIE
  Company Number: US-ABBVIE-6005254

PATIENT
  Age: 74 Year
  Sex: Female
  Weight: 69 kg

DRUGS (13)
  1. SKYRIZI [Suspect]
     Active Substance: RISANKIZUMAB-RZAA
     Indication: Crohn^s disease
     Dosage: FORM STRENGTH UNITS: 180 MILLIGRAM
     Route: 058
     Dates: start: 202304, end: 202304
  2. SKYRIZI [Suspect]
     Active Substance: RISANKIZUMAB-RZAA
     Dosage: FORM STRENGTH UNITS: 180 MILLIGRAM
     Route: 058
     Dates: start: 20241005
  3. SKYRIZI [Suspect]
     Active Substance: RISANKIZUMAB-RZAA
     Dosage: FORM STRENGTH UNITS: 180 MILLIGRAM
     Route: 058
     Dates: start: 20240622, end: 20240622
  4. LEVOTHYROXINE [Concomitant]
     Active Substance: LEVOTHYROXINE
     Indication: Hypothyroidism
     Route: 048
     Dates: start: 1988
  5. MAGNESIUM [Concomitant]
     Active Substance: MAGNESIUM
     Indication: Alopecia
     Route: 048
     Dates: start: 20230701
  6. VITAMIN D3 [Concomitant]
     Active Substance: CHOLECALCIFEROL
     Indication: Mineral supplementation
     Route: 048
     Dates: start: 20190626
  7. VITAMIN C [Concomitant]
     Active Substance: ASCORBIC ACID
     Indication: Routine health maintenance
     Route: 048
     Dates: start: 20240201
  8. DULCOLAX STOOL SOFTENER [Concomitant]
     Active Substance: DOCUSATE SODIUM
     Indication: Constipation
     Route: 048
     Dates: start: 20230801
  9. VOLTAREN [Concomitant]
     Active Substance: DICLOFENAC SODIUM
     Indication: Arthralgia
     Route: 061
     Dates: start: 20240415
  10. AZELASTINE [Concomitant]
     Active Substance: AZELASTINE
     Indication: Sinus operation
     Dates: start: 20230329
  11. FLUTICASONE [Concomitant]
     Active Substance: FLUTICASONE
     Indication: Sinus operation
     Dates: start: 20230329
  12. BIOTIN [Concomitant]
     Active Substance: BIOTIN
     Indication: Alopecia
     Dates: start: 20240318
  13. LORATADINE [Concomitant]
     Active Substance: LORATADINE
     Indication: Sinus disorder
     Route: 048

REACTIONS (6)
  - Cataract [Recovered/Resolved]
  - Urticaria [Recovered/Resolved]
  - Ocular discomfort [Recovered/Resolved]
  - Eye infection [Recovered/Resolved]
  - Eye irritation [Recovered/Resolved]
  - Deposit eye [Recovered/Resolved]

NARRATIVE: CASE EVENT DATE: 20241011
